FAERS Safety Report 7375905-2 (Version None)
Quarter: 2011Q1

REPORT INFORMATION
  Report Type: 
  Country: None (occurrence: None)
  Receive Date: 20110325
  Receipt Date: 20110317
  Transmission Date: 20110831
  Serious: Yes (Hospitalization)
  Sender: FDA-Public Use
  Company Number: B0706546A

PATIENT
  Sex: Female

DRUGS (3)
  1. ANSATIPINE [Concomitant]
     Route: 065
     Dates: start: 20110101, end: 20110215
  2. NEXIUM [Concomitant]
     Route: 065
  3. AUGMENTIN [Suspect]
     Route: 048
     Dates: start: 20110101, end: 20110211

REACTIONS (6)
  - LEUKOPENIA [None]
  - LYMPHOPENIA [None]
  - AGRANULOCYTOSIS [None]
  - PYREXIA [None]
  - BACK PAIN [None]
  - CHROMATURIA [None]
